FAERS Safety Report 7585409-X (Version None)
Quarter: 2011Q2

REPORT INFORMATION
  Report Type: 
  Country: None (occurrence: None)
  Receive Date: 20110624
  Receipt Date: 20110614
  Transmission Date: 20111010
  Serious: Yes (Hospitalization, Other)
  Sender: FDA-Public Use
  Company Number: CIP11000507

PATIENT
  Age: 77 Year
  Sex: Female

DRUGS (16)
  1. COLACE (DOCUSATE SODIUM) [Concomitant]
  2. ERGOCALCIFEROL [Concomitant]
  3. FERROUS SULFATE TAB [Concomitant]
  4. MULTIVITAMIN /00097801/ (ASCORBIC ACID, CALCIUM PANTOTHENATE, ERGOCALC [Concomitant]
  5. OMEGA 3 /01334101/ (FISH OIL) [Concomitant]
  6. COUMADIN [Concomitant]
  7. ASPIRIN [Concomitant]
  8. PROAIR (FLUTICASONE PROPIONATE) [Concomitant]
  9. PLAQUENIL /00072601/ (HYDROXYCHLOROQUINE) [Concomitant]
  10. ACTONEL [Suspect]
     Dosage: 35 MG ONCE WEEKLY, ORAL
     Route: 048
  11. AMLODIPINE [Concomitant]
  12. ZETIA [Concomitant]
  13. ADVAIR HFA [Concomitant]
  14. LASIX [Concomitant]
  15. OMEPRAZOLE [Concomitant]
  16. OSCAL /00108001/ (CALCIUM CARBONATE) [Concomitant]

REACTIONS (8)
  - INADEQUATE ANALGESIA [None]
  - ARTHRALGIA [None]
  - WEIGHT BEARING DIFFICULTY [None]
  - FRACTURE DISPLACEMENT [None]
  - PAIN IN EXTREMITY [None]
  - FALL [None]
  - FEMUR FRACTURE [None]
  - OSTEOARTHRITIS [None]
